FAERS Safety Report 15214716 (Version 1)
Quarter: 2018Q3

REPORT INFORMATION
  Report Type: Spontaneous
  Country: US (occurrence: US)
  Receive Date: 20180730
  Receipt Date: 20180730
  Transmission Date: 20181010
  Serious: No
  Sender: FDA-Public Use
  Company Number: US-GLAXOSMITHKLINE-US2018130322

PATIENT
  Sex: Male

DRUGS (1)
  1. SUMATRIPTAN SUCCINATE. [Suspect]
     Active Substance: SUMATRIPTAN SUCCINATE
     Indication: MIGRAINE
     Dosage: 6 MG, PRN
     Route: 058

REACTIONS (2)
  - Product storage error [Not Recovered/Not Resolved]
  - Drug effect decreased [Recovering/Resolving]

NARRATIVE: CASE EVENT DATE: 201806
